FAERS Safety Report 17115948 (Version 5)
Quarter: 2020Q1

REPORT INFORMATION
  Report Type: Spontaneous
  Country: US (occurrence: US)
  Receive Date: 20191205
  Receipt Date: 20200108
  Transmission Date: 20200409
  Serious: No
  Sender: FDA-Public Use
  Company Number: US-PFIZER INC-2019524517

PATIENT
  Age: 67 Year

DRUGS (2)
  1. PROTONIX [Suspect]
     Active Substance: PANTOPRAZOLE SODIUM
     Dosage: 40 MG, UNK
  2. PROTONIX [Suspect]
     Active Substance: PANTOPRAZOLE SODIUM
     Dosage: 160 MG, DAILY

REACTIONS (4)
  - Malaise [Unknown]
  - Sinusitis [Unknown]
  - Cough [Unknown]
  - Gastrooesophageal reflux disease [Unknown]
